FAERS Safety Report 18877730 (Version 1)
Quarter: 2021Q1

REPORT INFORMATION
  Report Type: Spontaneous
  Country: US (occurrence: US)
  Receive Date: 20210211
  Receipt Date: 20210211
  Transmission Date: 20210420
  Serious: No
  Sender: FDA-Public Use
  Company Number: US-009507513-2102USA000059

PATIENT

DRUGS (1)
  1. DULERA [Suspect]
     Active Substance: FORMOTEROL FUMARATE DIHYDRATE\MOMETASONE FUROATE
     Dosage: 100MCG/5MCG, ONCE A DAY (PRESCRIBED AS TWICE A DAY)
     Dates: start: 20210113

REACTIONS (5)
  - Intentional dose omission [Unknown]
  - Poor quality device used [Unknown]
  - Device malfunction [Unknown]
  - Wrong technique in device usage process [Unknown]
  - Visual impairment [Unknown]

NARRATIVE: CASE EVENT DATE: 2021
